FAERS Safety Report 6131685-X (Version None)
Quarter: 2009Q1

REPORT INFORMATION
  Report Type: 
  Country: None (occurrence: None)
  Receive Date: 20090325
  Receipt Date: 20090103
  Transmission Date: 20090719
  Serious: No
  Sender: FDA-Public Use
  Company Number: US-BRISTOL-MYERS SQUIBB COMPANY-14491724

PATIENT
  Age: 80 Year
  Sex: Male

DRUGS (2)
  1. ERBITUX [Suspect]
     Indication: HEAD AND NECK CANCER
     Dosage: EVENT OCCURED IN 3RD INFUSION HOLDIN BACK ERBITUX FOR 1-2 WEEKS
  2. BENADRYL [Concomitant]
     Indication: PREMEDICATION

REACTIONS (1)
  - DERMATITIS ACNEIFORM [None]
